FAERS Safety Report 17623267 (Version 1)
Quarter: 2020Q2

REPORT INFORMATION
  Report Type: Spontaneous
  Country: US (occurrence: US)
  Receive Date: 20200403
  Receipt Date: 20200403
  Transmission Date: 20200713
  Serious: No
  Sender: FDA-Public Use
  Company Number: None

PATIENT
  Age: 78 Year
  Sex: Male
  Weight: 95.81 kg

DRUGS (12)
  1. HYDROCHLOROTHIAZIDE, 25MG ,ORAL [Concomitant]
  2. LOSARTAN 100MG, ORAL [Concomitant]
  3. LABETALOL 100 MG, ORAL [Concomitant]
  4. OMEPRAZOLE 20MG, ORAL [Concomitant]
  5. INLYTA 5MG, ORAL [Concomitant]
     Dates: start: 20190712, end: 20191203
  6. EZETIMIDE 10MG, ORAL [Concomitant]
  7. INLYTA [Suspect]
     Active Substance: AXITINIB
     Indication: RENAL CANCER
     Route: 048
     Dates: start: 20200324, end: 20200403
  8. XARELTO 10 MG, ORAL [Concomitant]
  9. VITAMIN D3 1000U, ORAL [Concomitant]
  10. ALLOPURINOL 300MG, ORAL [Concomitant]
  11. FISH OIL BURP LESS, 1000MG, ORAL [Concomitant]
  12. LEVOTHYROXINE SODIUM, 200 MCG, ORAL [Concomitant]

REACTIONS (1)
  - Disease progression [None]

NARRATIVE: CASE EVENT DATE: 20200403
